FAERS Safety Report 8309765-X (Version None)
Quarter: 2012Q2

REPORT INFORMATION
  Report Type: 
  Country: None (occurrence: None)
  Receive Date: 20120425
  Receipt Date: 20120417
  Transmission Date: 20120825
  Serious: No
  Sender: FDA-Public Use
  Company Number: PHEH2012US008643

PATIENT
  Sex: Female

DRUGS (9)
  1. ZOFRAN [Concomitant]
  2. OMEPRAZOLE [Concomitant]
  3. CELEXA [Concomitant]
  4. MAGNESIUM OXIDE [Concomitant]
  5. ZYRTEC [Concomitant]
  6. REGLAN [Concomitant]
  7. PROBIOTICS [Concomitant]
  8. TASIGNA [Suspect]
     Dosage: 300 MG, BID
     Route: 048
  9. MIRALAX [Concomitant]

REACTIONS (3)
  - CONSTIPATION [None]
  - FATIGUE [None]
  - ABDOMINAL PAIN [None]
